FAERS Safety Report 26117923 (Version 1)
Quarter: 2025Q4

REPORT INFORMATION
  Report Type: Spontaneous
  Country: EU (occurrence: EU)
  Receive Date: 20251203
  Receipt Date: 20251203
  Transmission Date: 20260118
  Serious: Yes (Other)
  Sender: ABBVIE
  Company Number: EU-JNJFOC-20251172535

PATIENT
  Age: 69 Year

DRUGS (3)
  1. IMBRUVICA [Suspect]
     Active Substance: IBRUTINIB
     Indication: Chronic lymphocytic leukaemia
     Route: 048
     Dates: start: 202503, end: 202505
  2. ALLOPURINOL [Concomitant]
     Active Substance: ALLOPURINOL
     Indication: Product used for unknown indication
  3. VENETOCLAX [Suspect]
     Active Substance: VENETOCLAX
     Indication: Chronic lymphocytic leukaemia
     Route: 065
     Dates: start: 202503, end: 202505

REACTIONS (4)
  - Leukocytosis [Recovering/Resolving]
  - Blood creatinine increased [Recovering/Resolving]
  - Tumour lysis syndrome [Unknown]
  - Blood uric acid increased [Recovering/Resolving]
